FAERS Safety Report 10948452 (Version 2)
Quarter: 2015Q2

REPORT INFORMATION
  Report Type: Report from Study
  Country: CA (occurrence: CA)
  Receive Date: 20150324
  Receipt Date: 20150528
  Transmission Date: 20150821
  Serious: Yes (Other)
  Sender: FDA-Public Use
  Company Number: CA-JNJFOC-20150313555

PATIENT
  Age: 50 Year
  Sex: Female
  Weight: 78 kg

DRUGS (3)
  1. PROGESTERON [Concomitant]
     Route: 065
  2. DEVROM [Concomitant]
     Active Substance: BISMUTH SUBGALLATE
     Route: 065
  3. REMICADE [Suspect]
     Active Substance: INFLIXIMAB
     Indication: CROHN^S DISEASE
     Dosage: POSSIBLY 40 INFUSIONS
     Route: 042
     Dates: start: 200801

REACTIONS (2)
  - Abdominal pain [Recovering/Resolving]
  - Abdominal hernia [Recovered/Resolved]

NARRATIVE: CASE EVENT DATE: 2015
